FAERS Safety Report 7488954-0 (Version None)
Quarter: 2011Q2

REPORT INFORMATION
  Report Type: 
  Country: None (occurrence: None)
  Receive Date: 20110518
  Receipt Date: 20110509
  Transmission Date: 20111010
  Serious: Yes (Other)
  Sender: FDA-Public Use
  Company Number: US-UCBSA-028339

PATIENT
  Sex: Female
  Weight: 88.45 kg

DRUGS (4)
  1. PENTASA [Concomitant]
  2. INSULIN [Concomitant]
  3. CIMZIA [Suspect]
     Indication: CROHN'S DISEASE
     Route: 058
     Dates: start: 20090801
  4. STARLIX [Concomitant]

REACTIONS (1)
  - WRIST FRACTURE [None]
